FAERS Safety Report 6749895-7 (Version None)
Quarter: 2010Q2

REPORT INFORMATION
  Report Type: 
  Country: None (occurrence: None)
  Receive Date: 20100601
  Receipt Date: 20100518
  Transmission Date: 20101027
  Serious: Yes (Other)
  Sender: FDA-Public Use
  Company Number: FR-ELI_LILLY_AND_COMPANY-FR201005005511

PATIENT
  Age: 50 Year
  Sex: Female

DRUGS (1)
  1. OPTRUMA [Suspect]
     Dosage: UNK, UNKNOWN
     Route: 048

REACTIONS (3)
  - COAGULOPATHY [None]
  - LEUKAEMIA [None]
  - PHLEBITIS [None]
